FAERS Safety Report 7663454-3 (Version None)
Quarter: 2011Q3

REPORT INFORMATION
  Report Type: 
  Country: None (occurrence: None)
  Receive Date: 20110805
  Receipt Date: 20100730
  Transmission Date: 20111222
  Serious: No
  Sender: FDA-Public Use
  Company Number: US-ABBOTT-10P-163-0658150-00

PATIENT
  Sex: Female
  Weight: 77.18 kg

DRUGS (8)
  1. NIASPAN [Suspect]
     Dosage: AT BEDTIME
     Dates: start: 20100625
  2. ASPIRIN [Concomitant]
     Indication: PRODUCT USED FOR UNKNOWN INDICATION
     Dosage: DAILY
  3. CRESTOR [Concomitant]
     Indication: PRODUCT USED FOR UNKNOWN INDICATION
  4. CALCIUM ACETATE [Concomitant]
     Indication: PRODUCT USED FOR UNKNOWN INDICATION
  5. LOVAZA [Concomitant]
     Indication: PRODUCT USED FOR UNKNOWN INDICATION
  6. LISINOPRIL [Concomitant]
     Indication: PRODUCT USED FOR UNKNOWN INDICATION
  7. FISH OIL [Concomitant]
     Indication: PRODUCT USED FOR UNKNOWN INDICATION
  8. NIASPAN [Suspect]
     Indication: HYPERLIPIDAEMIA
     Dosage: AT BEDTIME
     Dates: start: 20100709

REACTIONS (1)
  - DIARRHOEA [None]
